FAERS Safety Report 7228119-0 (Version None)
Quarter: 2011Q1

REPORT INFORMATION
  Report Type: 
  Country: None (occurrence: None)
  Receive Date: 20110114
  Receipt Date: 20110110
  Transmission Date: 20110831
  Serious: Yes (Disabling, Other)
  Sender: FDA-Public Use
  Company Number: US-US-EMD SERONO, INC.-7000595

PATIENT
  Sex: Female

DRUGS (3)
  1. REBIF [Suspect]
     Indication: MULTIPLE SCLEROSIS
     Route: 058
     Dates: start: 20100218
  2. ADVIL [Concomitant]
     Indication: PREMEDICATION
  3. REBIF [Suspect]
     Route: 058

REACTIONS (4)
  - BLINDNESS UNILATERAL [None]
  - OPTIC NEURITIS [None]
  - VISUAL IMPAIRMENT [None]
  - MULTIPLE SCLEROSIS RELAPSE [None]
